FAERS Safety Report 24836149 (Version 1)
Quarter: 2025Q1

REPORT INFORMATION
  Report Type: Spontaneous
  Country: US (occurrence: US)
  Receive Date: 20250113
  Receipt Date: 20250113
  Transmission Date: 20250408
  Serious: No
  Sender: MACLEODS
  Company Number: US-MACLEODS PHARMA-MAC2025050974

PATIENT

DRUGS (2)
  1. RISEDRONATE SODIUM [Suspect]
     Active Substance: RISEDRONATE SODIUM
     Indication: Osteoporosis
     Dosage: NDC NO: 33342-109-37
     Dates: start: 202410, end: 20241222
  2. AMANTADINE [Concomitant]
     Active Substance: AMANTADINE
     Indication: Parkinson^s disease
     Route: 065

REACTIONS (1)
  - Back pain [Not Recovered/Not Resolved]

NARRATIVE: CASE EVENT DATE: 20241215
